FAERS Safety Report 6034715-9 (Version None)
Quarter: 2009Q1

REPORT INFORMATION
  Report Type: 
  Country: None (occurrence: None)
  Receive Date: 20090112
  Receipt Date: 20081231
  Transmission Date: 20090719
  Serious: No
  Sender: FDA-Public Use
  Company Number: GB-AVENTIS-200910214GDDC

PATIENT
  Sex: Female

DRUGS (2)
  1. ARAVA [Suspect]
     Dosage: DOSE: UNK
  2. DICLOFENAC SODIUM [Concomitant]
     Route: 065

REACTIONS (1)
  - PATERNAL DRUGS AFFECTING FOETUS [None]
